FAERS Safety Report 5657186-0 (Version None)
Quarter: 2008Q1

REPORT INFORMATION
  Report Type: 
  Country: None (occurrence: None)
  Receive Date: 20080306
  Receipt Date: 20080306
  Transmission Date: 20080703
  Serious: Yes (Hospitalization)
  Sender: FDA-Public Use
  Company Number: None

PATIENT
  Age: 78 Year
  Sex: Male

DRUGS (12)
  1. SIMVASTATIN [Suspect]
     Indication: HYPERLIPIDAEMIA
     Dosage: 80MG AT BEDTIME PO
     Route: 048
     Dates: start: 20060509, end: 20080111
  2. MEGACE [Concomitant]
  3. NEPHROCAPS [Concomitant]
  4. ALFUZOSIN HCL [Concomitant]
  5. FINASTERIDE [Concomitant]
  6. ASPIRIN [Concomitant]
  7. ESOMEPRAZOLE MAGNESIUM [Concomitant]
  8. FUROSEMIDE [Concomitant]
  9. LOSARTAN POTASSIUM [Concomitant]
  10. CARVEDILOL [Concomitant]
  11. ACETAZOLAMIDE [Concomitant]
  12. CLOPIDOGREL [Concomitant]

REACTIONS (5)
  - ALANINE AMINOTRANSFERASE INCREASED [None]
  - ASPARTATE AMINOTRANSFERASE INCREASED [None]
  - BLOOD CREATINE PHOSPHOKINASE INCREASED [None]
  - MYOPATHY [None]
  - URINARY TRACT INFECTION [None]
